FAERS Safety Report 19581380 (Version 1)
Quarter: 2021Q3

REPORT INFORMATION
  Report Type: Spontaneous
  Country: CH (occurrence: CH)
  Receive Date: 20210719
  Receipt Date: 20210719
  Transmission Date: 20211014
  Serious: Yes (Hospitalization, Other)
  Sender: FDA-Public Use
  Company Number: CH-OTSUKA-2019_002732

PATIENT
  Age: 42 Year
  Sex: Female

DRUGS (11)
  1. ABILIFY [Interacting]
     Active Substance: ARIPIPRAZOLE
     Dosage: INITIAL DOSE UNKNOWN
     Route: 048
     Dates: start: 20181221, end: 20181223
  2. LATUDA [Interacting]
     Active Substance: LURASIDONE HYDROCHLORIDE
     Dosage: UNK
     Route: 048
     Dates: end: 201812
  3. TARDYFERON [Concomitant]
     Active Substance: FERROUS SULFATE
     Indication: PRODUCT USED FOR UNKNOWN INDICATION
     Dosage: 80MG 1XDAY
     Route: 048
  4. LATUDA [Interacting]
     Active Substance: LURASIDONE HYDROCHLORIDE
     Indication: SCHIZOPHRENIA
     Dosage: 40MG 1XDAY
     Route: 048
     Dates: start: 201812, end: 20181225
  5. AMLODIPINE [Interacting]
     Active Substance: AMLODIPINE BESYLATE
     Indication: HYPERTENSION
     Dosage: 5MG 2XDAY
     Route: 048
  6. VALSARTAN. [Concomitant]
     Active Substance: VALSARTAN
     Indication: PRODUCT USED FOR UNKNOWN INDICATION
     Dosage: 80MG 1XDAY
     Route: 048
  7. TIAPRIDAL [Interacting]
     Active Substance: TIAPRIDE HYDROCHLORIDE
     Indication: DYSKINESIA
     Dosage: 100 MG 2?1?3?0
     Route: 048
     Dates: start: 20171219, end: 20181225
  8. ELTROXIN [Concomitant]
     Active Substance: LEVOTHYROXINE
     Indication: PRODUCT USED FOR UNKNOWN INDICATION
     Dosage: 0.025MG 1XDAY
     Route: 048
  9. DUPHALAC [Concomitant]
     Active Substance: LACTULOSE
     Indication: CONSTIPATION
     Dosage: 20ML 1XDAY
     Route: 048
  10. ABILIFY [Suspect]
     Active Substance: ARIPIPRAZOLE
     Indication: SCHIZOPHRENIA
     Dosage: 15 MG 1XDAY
     Route: 048
     Dates: start: 20181224, end: 20181225
  11. VI?DE 3 [Concomitant]
     Active Substance: CHOLECALCIFEROL
     Indication: PRODUCT USED FOR UNKNOWN INDICATION
     Dosage: 8 DROPLETS 1XDAY
     Route: 048

REACTIONS (4)
  - Hypothermia [Recovered/Resolved]
  - Tremor [Unknown]
  - Blood pressure increased [Unknown]
  - Drug interaction [Unknown]

NARRATIVE: CASE EVENT DATE: 20181225
